FAERS Safety Report 5277489-1 (Version None)
Quarter: 2007Q1

REPORT INFORMATION
  Report Type: 
  Country: None (occurrence: None)
  Receive Date: 20070327
  Receipt Date: 20070307
  Transmission Date: 20070707
  Serious: Yes (Hospitalization)
  Sender: FDA-Public Use
  Company Number: JP-ROCHE-459415

PATIENT
  Age: 54 Year
  Sex: Female
  Weight: 54 kg

DRUGS (6)
  1. PEGASYS [Suspect]
     Route: 058
     Dates: start: 20060627, end: 20060802
  2. MYONAL [Suspect]
     Route: 048
     Dates: start: 20060609, end: 20060811
  3. LOXOPROFEN SODIUM [Concomitant]
     Route: 048
     Dates: start: 20060719
  4. MUCOSTA [Concomitant]
     Route: 048
     Dates: start: 20060513
  5. ODRIC [Concomitant]
     Route: 048
     Dates: start: 20060530
  6. LOXOPROFEN SODIUM [Concomitant]
     Route: 048
     Dates: start: 20060719

REACTIONS (2)
  - DRUG ERUPTION [None]
  - GENERALISED OEDEMA [None]
